FAERS Safety Report 7349909-X (Version None)
Quarter: 2011Q1

REPORT INFORMATION
  Report Type: 
  Country: None (occurrence: None)
  Receive Date: 20110314
  Receipt Date: 20110308
  Transmission Date: 20110831
  Serious: Yes (Other)
  Sender: FDA-Public Use
  Company Number: JP-ROCHE-760160

PATIENT
  Age: 13 Year
  Sex: Male

DRUGS (4)
  1. BASILIXIMAB [Concomitant]
     Route: 065
  2. CELLCEPT [Suspect]
     Indication: PROPHYLAXIS AGAINST TRANSPLANT REJECTION
     Route: 048
  3. METHYLPREDNISOLONE [Concomitant]
     Route: 065
  4. TACROLIMUS HYDRATE [Concomitant]
     Route: 065

REACTIONS (2)
  - HYDRONEPHROSIS [None]
  - URETERIC STENOSIS [None]
